FAERS Safety Report 5382592-1 (Version None)
Quarter: 2007Q3

REPORT INFORMATION
  Report Type: 
  Country: None (occurrence: None)
  Receive Date: 20070702
  Receipt Date: 20070306
  Transmission Date: 20080115
  Serious: No
  Sender: FDA-Public Use
  Company Number: 2007PV031219

PATIENT
  Age: 51 Year
  Sex: Male

DRUGS (5)
  1. SYMLIN [Suspect]
     Indication: DIABETES MELLITUS
     Dosage: 120 MCG;TID;SC; 70 MCG;TID;SC;120 MCG;TID;SC
     Route: 058
     Dates: start: 20070129, end: 20070226
  2. SYMLIN [Suspect]
     Indication: DIABETES MELLITUS
     Dosage: 120 MCG;TID;SC; 70 MCG;TID;SC;120 MCG;TID;SC
     Route: 058
     Dates: start: 20070227, end: 20070305
  3. SYMLIN [Suspect]
     Indication: DIABETES MELLITUS
     Dosage: 120 MCG;TID;SC; 70 MCG;TID;SC;120 MCG;TID;SC
     Route: 058
     Dates: start: 20070309
  4. NOVOLOG [Concomitant]
  5. APIDRA [Concomitant]

REACTIONS (2)
  - INCORRECT DOSE ADMINISTERED [None]
  - MALAISE [None]
